FAERS Safety Report 5006477-5 (Version None)
Quarter: 2006Q2

REPORT INFORMATION
  Report Type: 
  Country: None (occurrence: None)
  Receive Date: 20060519
  Receipt Date: 20060510
  Transmission Date: 20061013
  Serious: Yes (Other)
  Sender: FDA-Public Use
  Company Number: SE-AVENTIS-200615023GDDC

PATIENT
  Age: 33 Year
  Sex: Female

DRUGS (7)
  1. DESMOPRESSIN [Suspect]
     Indication: ENURESIS
     Route: 048
  2. CLOZARIL [Suspect]
     Indication: SCHIZOPHRENIA
     Route: 048
     Dates: start: 20020924
  3. DOXAZOSIN [Concomitant]
     Indication: HYPERTENSION
     Route: 048
     Dates: start: 20050819
  4. SALBUTAMOL [Concomitant]
     Indication: ASTHMA
     Route: 055
  5. BUDESONIDE [Concomitant]
     Indication: ASTHMA
     Route: 055
  6. HYOSCINE HBR HYT [Concomitant]
     Indication: SALIVARY HYPERSECRETION
     Route: 048
  7. SERTRALINE [Concomitant]
     Indication: DEPRESSION
     Route: 048

REACTIONS (2)
  - BLOOD PRESSURE INCREASED [None]
  - SINUS TACHYCARDIA [None]
